FAERS Safety Report 18138084 (Version 2)
Quarter: 2020Q3

REPORT INFORMATION
  Report Type: Spontaneous
  Country: IT (occurrence: IT)
  Receive Date: 20200812
  Receipt Date: 20200901
  Transmission Date: 20201103
  Serious: Yes (Other)
  Sender: FDA-Public Use
  Company Number: IT-AMGEN-ITASP2020127721

PATIENT
  Age: 62 Year
  Sex: Female

DRUGS (11)
  1. EPIRUBICIN HYDROCHLORIDE. [Suspect]
     Active Substance: EPIRUBICIN HYDROCHLORIDE
     Indication: BRONCHIAL CARCINOMA
     Dosage: 149.4 MILLIGRAM, CYCLICAL
     Route: 065
     Dates: start: 20140901
  2. CYCLOPHOSPHAMIDE. [Suspect]
     Active Substance: CYCLOPHOSPHAMIDE
     Indication: BRONCHIAL CARCINOMA
     Dosage: 996 MILLIGRAM, CYCLICAL
     Route: 065
     Dates: start: 20140901
  3. PALONOSETRON HYDROCHLORIDE. [Concomitant]
     Active Substance: PALONOSETRON HYDROCHLORIDE
     Dosage: 0.25 MILLIGRAM, CYCLICAL
     Dates: start: 20140901
  4. METHYLPREDNISOLONE. [Concomitant]
     Active Substance: METHYLPREDNISOLONE
     Dosage: 125 MILLIGRAM, CYCLICAL
     Dates: start: 20140901
  5. TROPISETRON [Concomitant]
     Active Substance: TROPISETRON
     Dosage: 5 MILLIGRAM, CYCLICAL
     Dates: start: 20140901
  6. DOCETAXEL. [Suspect]
     Active Substance: DOCETAXEL
     Indication: BRONCHIAL CARCINOMA
     Dosage: 125.3 MILLIGRAM, CYCLICAL
     Route: 065
     Dates: start: 20141124
  7. CHLORPHENAMINE [Concomitant]
     Active Substance: CHLORPHENIRAMINE MALEATE
     Dosage: 10 MILLIGRAM, CYCLICAL
     Dates: start: 20140901
  8. DEXAMETHASONE. [Concomitant]
     Active Substance: DEXAMETHASONE
     Dosage: 12 MILLIGRAM, CYCLICAL
     Dates: start: 20140901
  9. RANITIDINE. [Concomitant]
     Active Substance: RANITIDINE
     Dosage: 50 MILLIGRAM, CYCLICAL
     Dates: start: 20140901
  10. TRASTUZUMAB. [Suspect]
     Active Substance: TRASTUZUMAB
     Indication: BRONCHIAL CARCINOMA
     Dosage: 504 MILLIGRAM, CYCLICAL
     Route: 065
     Dates: start: 20141124
  11. APREPITANT. [Concomitant]
     Active Substance: APREPITANT
     Dosage: 125 MILLIGRAM, CYCLICAL
     Dates: start: 20140901

REACTIONS (1)
  - Acute pulmonary oedema [Unknown]

NARRATIVE: CASE EVENT DATE: 20190926
